FAERS Safety Report 6649219-X (Version None)
Quarter: 2010Q1

REPORT INFORMATION
  Report Type: 
  Country: None (occurrence: None)
  Receive Date: 20100322
  Receipt Date: 20100309
  Transmission Date: 20100710
  Serious: Yes (Hospitalization)
  Sender: FDA-Public Use
  Company Number: 232475J10USA

PATIENT
  Age: 53 Year
  Sex: Female

DRUGS (1)
  1. REBIF [Suspect]
     Indication: MULTIPLE SCLEROSIS
     Dosage: 44 MCG, 3 IN 1 WEEKS, SUBCUTANEOUS
     Route: 058
     Dates: start: 20080303

REACTIONS (5)
  - H1N1 INFLUENZA [None]
  - HAEMOGLOBIN DECREASED [None]
  - MULTIPLE SCLEROSIS RELAPSE [None]
  - PNEUMONIA [None]
  - VIRAL INFECTION [None]
